FAERS Safety Report 13672377 (Version 1)
Quarter: 2017Q2

REPORT INFORMATION
  Report Type: Spontaneous
  Country: US (occurrence: US)
  Receive Date: 20170620
  Receipt Date: 20170620
  Transmission Date: 20170830
  Serious: No
  Sender: FDA-Public Use
  Company Number: US-B.I. PHARMACEUTICALS,INC./RIDGEFIELD-2017-BI-034646

PATIENT
  Age: 66 Year
  Sex: Male

DRUGS (10)
  1. LOVASTATIN. [Concomitant]
     Active Substance: LOVASTATIN
     Indication: BLOOD CHOLESTEROL INCREASED
     Dosage: 1 TABLET 2 TIMES PER DAY;  FORM STRENGTH: 40 MG; FORMULATION: TABLET
     Route: 048
     Dates: start: 2010
  2. HYDROCODONE [Concomitant]
     Active Substance: HYDROCODONE
     Indication: PAIN
     Dosage: 1 TABLET 3 TIMES PER DAY;  FORM STRENGTH: 7.5 MG; FORMULATION: TABLET
     Route: 048
     Dates: start: 2010
  3. BENAZEPRIL [Concomitant]
     Active Substance: BENAZEPRIL HYDROCHLORIDE
     Indication: HYPERTENSION
     Dosage: 1 TABLET PER DAY;  FORM STRENGTH: 20 MG; FORMULATION: TABLET
     Route: 048
     Dates: start: 2010
  4. SYMBICORT [Concomitant]
     Active Substance: BUDESONIDE\FORMOTEROL FUMARATE DIHYDRATE
     Indication: CHRONIC OBSTRUCTIVE PULMONARY DISEASE
     Dosage: 2 INHALATION 2 TIMES PER DAY;  FORM STRENGTH: 160/4.5 MCG; FORMULATION: INHALATION AEROSOL
     Route: 055
     Dates: start: 2015
  5. SPIRIVA [Suspect]
     Active Substance: TIOTROPIUM BROMIDE MONOHYDRATE
     Indication: CHRONIC OBSTRUCTIVE PULMONARY DISEASE
     Route: 055
     Dates: start: 20170615, end: 20170617
  6. ATIVAN [Concomitant]
     Active Substance: LORAZEPAM
     Indication: ANXIETY
     Dosage: AS NEEDED;  FORM STRENGTH: 0.5 MG; FORMULATION: TABLET
     Route: 048
     Dates: start: 2010
  7. VENTOLIN [Concomitant]
     Active Substance: ALBUTEROL SULFATE
     Indication: CHRONIC OBSTRUCTIVE PULMONARY DISEASE
     Dosage: AS NEEDED;  FORM STRENGTH: 90 MCG; FORMULATION: INHALATION AEROSOL
     Route: 055
     Dates: start: 2015
  8. HYDROTHAZIDE [Concomitant]
     Indication: HYPERTENSION
     Dosage: 1 TIME PER DAY;  FORM STRENGTH: 25 MG; FORMULATION: CAPSULE
     Route: 048
     Dates: start: 2015
  9. METOPROLOL. [Concomitant]
     Active Substance: METOPROLOL
     Indication: HYPERTENSION
     Dosage: 1 TABLET 2 TIMES PER DAY;  FORM STRENGTH: 50 MG; FORMULATION: TABLET
     Route: 048
     Dates: start: 2015
  10. TRAMADOL. [Concomitant]
     Active Substance: TRAMADOL
     Indication: SLEEP DISORDER
     Dosage: 1 DOSE AT NIGHT;  FORM STRENGTH: 150 MG; FORMULATION: TABLET
     Route: 048
     Dates: start: 2010

REACTIONS (2)
  - Dyspnoea [Recovered/Resolved]
  - Burning sensation [Recovered/Resolved]

NARRATIVE: CASE EVENT DATE: 20170615
